FAERS Safety Report 6814672-5 (Version None)
Quarter: 2010Q2

REPORT INFORMATION
  Report Type: 
  Country: None (occurrence: None)
  Receive Date: 20100628
  Receipt Date: 20100617
  Transmission Date: 20101027
  Serious: No
  Sender: FDA-Public Use
  Company Number: 6569

PATIENT
  Age: 64 Year
  Sex: Male
  Weight: 81.6475 kg

DRUGS (5)
  1. DRITHO-CREAM 1.0% 50 GM [Suspect]
     Dosage: APPLICATION - QD
     Dates: start: 20100410, end: 20100413
  2. ATENOLOL [Concomitant]
  3. RITALIN [Concomitant]
  4. COUMADIN [Concomitant]
  5. SUCRALFATE [Concomitant]

REACTIONS (5)
  - BLISTER [None]
  - GENERALISED ERYTHEMA [None]
  - IMPAIRED HEALING [None]
  - SKIN EXFOLIATION [None]
  - THERMAL BURN [None]
